FAERS Safety Report 5179794-6 (Version None)
Quarter: 2006Q4

REPORT INFORMATION
  Report Type: 
  Country: None (occurrence: None)
  Receive Date: 20061219
  Receipt Date: 20061214
  Transmission Date: 20070319
  Serious: Yes (Life-Threatening, Hospitalization, Disabling)
  Sender: FDA-Public Use
  Company Number: GB-MERCK-0612GBR00075

PATIENT
  Age: 62 Year
  Sex: Male
  Weight: 90 kg

DRUGS (5)
  1. ZETIA [Suspect]
     Indication: BLOOD CHOLESTEROL INCREASED
     Route: 048
     Dates: start: 20050101, end: 20061130
  2.  [Concomitant]
     Indication: ANTIPLATELET THERAPY
     Route: 048
     Dates: start: 20060301
  3.  [Concomitant]
     Indication: BLOOD CHOLESTEROL INCREASED
     Route: 048
     Dates: start: 20050101
  4.  [Concomitant]
     Indication: HYPERTENSION
     Route: 048
     Dates: start: 20060301
  5.  [Concomitant]
     Route: 065

REACTIONS (2)
  - ANGIONEUROTIC OEDEMA [None]
  - OBSTRUCTIVE AIRWAYS DISORDER [None]
